FAERS Safety Report 5951796-9 (Version None)
Quarter: 2008Q4

REPORT INFORMATION
  Report Type: 
  Country: None (occurrence: None)
  Receive Date: 20081113
  Receipt Date: 20081103
  Transmission Date: 20090506
  Serious: Yes (Hospitalization)
  Sender: FDA-Public Use
  Company Number: A0743774A

PATIENT
  Age: 85 Year
  Sex: Female
  Weight: 60.8 kg

DRUGS (3)
  1. ROSIGLITAZONE [Suspect]
     Indication: DEMENTIA ALZHEIMER'S TYPE
     Dosage: 8MG PER DAY
     Route: 048
     Dates: start: 20070912
  2. DONEPEZIL HCL [Concomitant]
     Indication: DEMENTIA ALZHEIMER'S TYPE
     Dosage: 10MG PER DAY
     Route: 048
     Dates: start: 20061001
  3. DOCUSATE SODIUM [Concomitant]
     Indication: CONSTIPATION
     Dosage: 100MG PER DAY
     Route: 048
     Dates: start: 20080912

REACTIONS (3)
  - BACK PAIN [None]
  - OSTEOARTHRITIS [None]
  - SPINAL FRACTURE [None]
